FAERS Safety Report 24653628 (Version 1)
Quarter: 2024Q4

REPORT INFORMATION
  Report Type: Spontaneous
  Country: RU (occurrence: RU)
  Receive Date: 20241122
  Receipt Date: 20241122
  Transmission Date: 20250115
  Serious: Yes (Life-Threatening, Other)
  Sender: ALEXION PHARMACEUTICALS
  Company Number: RU-ASTRAZENECA-202411RUS015529RU

PATIENT
  Age: 68 Year
  Weight: 90 kg

DRUGS (12)
  1. BRILINTA [Suspect]
     Active Substance: TICAGRELOR
     Dosage: 180 MILLIGRAM
  2. BRILINTA [Suspect]
     Active Substance: TICAGRELOR
     Dosage: 180 MILLIGRAM
  3. BRILINTA [Suspect]
     Active Substance: TICAGRELOR
     Dosage: 180 MILLIGRAM
  4. BRILINTA [Suspect]
     Active Substance: TICAGRELOR
     Dosage: 180 MILLIGRAM
  5. ASPIRIN [Concomitant]
     Active Substance: ASPIRIN
     Dosage: UNK
  6. ASPIRIN [Concomitant]
     Active Substance: ASPIRIN
     Dosage: UNK
  7. ASPIRIN [Concomitant]
     Active Substance: ASPIRIN
     Dosage: UNK
  8. ASPIRIN [Concomitant]
     Active Substance: ASPIRIN
     Dosage: UNK
  9. HEPARIN [Concomitant]
     Active Substance: HEPARIN SODIUM
     Dosage: UNK
  10. HEPARIN [Concomitant]
     Active Substance: HEPARIN SODIUM
     Dosage: UNK
  11. MOXONIDINE [Concomitant]
     Active Substance: MOXONIDINE
     Dosage: UNK
  12. MOXONIDINE [Concomitant]
     Active Substance: MOXONIDINE
     Dosage: UNK

REACTIONS (2)
  - Angioedema [Recovered/Resolved]
  - Hyperaemia [Recovered/Resolved]
